FAERS Safety Report 13880562 (Version 1)
Quarter: 2017Q3

REPORT INFORMATION
  Report Type: Spontaneous
  Country: US (occurrence: None)
  Receive Date: 20170815
  Receipt Date: 20170815
  Transmission Date: 20171127
  Serious: Yes (Hospitalization)
  Sender: FDA-Public Use
  Company Number: None

PATIENT
  Age: 4 Year
  Sex: Male
  Weight: 16.3 kg

DRUGS (15)
  1. DEXAMETHASONE. [Suspect]
     Active Substance: DEXAMETHASONE
     Dates: end: 20170711
  2. AMPHOTERICIN IN WATER [Concomitant]
  3. POSACONAZOLE [Concomitant]
     Active Substance: POSACONAZOLE
  4. OSELTAMIVIR [Concomitant]
     Active Substance: OSELTAMIVIR
  5. ONCASPAR [Suspect]
     Active Substance: PEGASPARGASE
     Dates: end: 20170702
  6. METHOTREXATE. [Suspect]
     Active Substance: METHOTREXATE
     Dates: end: 20170706
  7. CHLOROTHIAZIDE. [Concomitant]
     Active Substance: CHLOROTHIAZIDE
  8. METRONIDAZOLE. [Concomitant]
     Active Substance: METRONIDAZOLE
  9. VANCOMYCIN [Concomitant]
     Active Substance: VANCOMYCIN
  10. VORICONAZOLE. [Concomitant]
     Active Substance: VORICONAZOLE
  11. CYTARABINE. [Suspect]
     Active Substance: CYTARABINE
     Dates: end: 20170628
  12. VINCRISTINE SULFATE. [Suspect]
     Active Substance: VINCRISTINE SULFATE
     Dates: end: 20170706
  13. CEFEPIME [Concomitant]
     Active Substance: CEFEPIME HYDROCHLORIDE
  14. AMPHOTERICIN B LIPOSOMAL [Concomitant]
     Active Substance: AMPHOTERICIN B
  15. MEROPENEM. [Concomitant]
     Active Substance: MEROPENEM

REACTIONS (17)
  - Contusion [None]
  - Lymphadenopathy [None]
  - Anaphylactoid reaction [None]
  - Pyrexia [None]
  - Anal ulcer [None]
  - Gingival bleeding [None]
  - Pain in jaw [None]
  - Leukaemia [None]
  - Sinusitis [None]
  - Pharyngeal inflammation [None]
  - Staphylococcal skin infection [None]
  - Influenza [None]
  - Stomatitis [None]
  - Fungal infection [None]
  - Oral disorder [None]
  - Neutropenia [None]
  - Blood pressure increased [None]

NARRATIVE: CASE EVENT DATE: 20170711
